FAERS Safety Report 5156584-1 (Version None)
Quarter: 2006Q4

REPORT INFORMATION
  Report Type: 
  Country: None (occurrence: None)
  Receive Date: 20061122
  Receipt Date: 20061005
  Transmission Date: 20070319
  Serious: Yes (Hospitalization)
  Sender: FDA-Public Use
  Company Number: AU-BOEHRINGER INGELHEIM PHARMACEUTICALS, INC.-2006-BP-11709AU

PATIENT
  Age: 64 Year
  Sex: Female

DRUGS (1)
  1. ASASANTIN SR (CAPSULE, LONG ACTING) [Suspect]
     Route: 048

REACTIONS (2)
  - GASTRIC ULCER [None]
  - HAEMOGLOBIN DECREASED [None]
